FAERS Safety Report 9533255 (Version 2)
Quarter: 2013Q3

REPORT INFORMATION
  Report Type: Report from Study
  Country: US (occurrence: US)
  Receive Date: 20130918
  Receipt Date: 20130923
  Transmission Date: 20140515
  Serious: Yes (Hospitalization, Other)
  Sender: FDA-Public Use
  Company Number: US-ABBVIE-13P-163-1147530-00

PATIENT
  Sex: Female

DRUGS (7)
  1. HUMIRA [Suspect]
     Indication: COLITIS ULCERATIVE
     Dates: start: 20130716
  2. ASACOL HD [Concomitant]
     Indication: COLITIS ULCERATIVE
  3. BUPROPION [Concomitant]
     Indication: DEPRESSION
     Dosage: 300 MG DAILY
  4. CYMBALTA [Concomitant]
     Indication: DEPRESSION
     Dosage: 50 MG DAILY
  5. ALLEGRA [Concomitant]
     Indication: HYPERSENSITIVITY
     Dosage: DAILY
  6. ESTRADIOL [Concomitant]
     Indication: MENOPAUSE
     Dosage: DAILY
  7. PROMETRIUM [Concomitant]
     Indication: MENOPAUSE
     Dosage: DAILY

REACTIONS (2)
  - Anaemia [Unknown]
  - Clostridium difficile infection [Unknown]
